FAERS Safety Report 24333385 (Version 3)
Quarter: 2024Q4

REPORT INFORMATION
  Report Type: Spontaneous
  Country: AR (occurrence: AR)
  Receive Date: 20240918
  Receipt Date: 20241127
  Transmission Date: 20250115
  Serious: No
  Sender: PFIZER
  Company Number: AR-PFIZER INC-202400253876

PATIENT
  Age: 15 Year
  Sex: Male

DRUGS (1)
  1. GENOTROPIN [Suspect]
     Active Substance: SOMATROPIN
     Indication: Short stature
     Dosage: 1.2 MG, 6X PER WEEK
     Dates: start: 20220706

REACTIONS (2)
  - Device issue [Unknown]
  - Device difficult to use [Unknown]

NARRATIVE: CASE EVENT DATE: 20240821
